FAERS Safety Report 4452586-9 (Version None)
Quarter: 2004Q3

REPORT INFORMATION
  Report Type: 
  Country: None (occurrence: None)
  Receive Date: 20040913
  Receipt Date: 20040728
  Transmission Date: 20050211
  Serious: No
  Sender: FDA-Public Use
  Company Number: 2004-BP-06245BP(0)

PATIENT
  Age: 72 Year
  Sex: Male

DRUGS (5)
  1. SPIRIVA [Suspect]
     Indication: CHRONIC OBSTRUCTIVE AIRWAYS DISEASE
     Dosage: 18 MCG (18 MCG, 1 INH OD), IH
     Dates: start: 20040601
  2. ALBUTEROL [Concomitant]
  3. LOTREL (LOTREL) [Concomitant]
  4. ACETYLSALICYLIC ACID SRT [Concomitant]
  5. .. [Suspect]

REACTIONS (1)
  - DYSPNOEA [None]
